FAERS Safety Report 10273884 (Version 1)
Quarter: 2014Q3

REPORT INFORMATION
  Report Type: Spontaneous
  Country: DE (occurrence: DE)
  Receive Date: 20140702
  Receipt Date: 20140702
  Transmission Date: 20150326
  Serious: Yes (Other)
  Sender: FDA-Public Use
  Company Number: DE-TEVA-491957GER

PATIENT
  Sex: Female

DRUGS (1)
  1. ZOLPIDEM-RATIOPHARM 5 MG FILMTABLETTEN [Suspect]
     Active Substance: ZOLPIDEM\ZOLPIDEM TARTRATE
     Route: 048

REACTIONS (2)
  - Road traffic accident [Unknown]
  - Drug level increased [Unknown]
